FAERS Safety Report 9227782 (Version 2)
Quarter: 2014Q3

REPORT INFORMATION
  Report Type: Spontaneous
  Country: MX (occurrence: MX)
  Receive Date: 20130412
  Receipt Date: 20140718
  Transmission Date: 20150326
  Serious: Yes (Other)
  Sender: FDA-Public Use
  Company Number: PHHY2013MX034964

PATIENT
  Age: 89 Year
  Sex: Male

DRUGS (10)
  1. PINAVERIO [Concomitant]
     Indication: GASTRIC DISORDER
     Dosage: 2 UKN, UNK
     Dates: start: 2007
  2. LOSARTAN [Concomitant]
     Active Substance: LOSARTAN
     Indication: HYPERTENSION
     Dosage: 2 UKN, QD
     Dates: start: 201210
  3. TEGRETOL [Suspect]
     Active Substance: CARBAMAZEPINE
     Dosage: 400 MG, UNK
  4. DICLOFENAC [Suspect]
     Active Substance: DICLOFENAC
     Dosage: UNK UKN, UNK
  5. VITAMIN B COMPLEX [Concomitant]
     Active Substance: CYANOCOBALAMIN\DEXPANTHENOL\NIACINAMIDE\PYRIDOXINE HYDROCHLORIDE\RIBOFLAVIN 5^-PHOSPHATE SODIUM\THIAMINE HYDROCHLORIDE\VITAMIN B COMPLEX
     Indication: BONE MARROW FAILURE
     Dosage: UNK UKN, UNK
     Route: 065
     Dates: start: 201211
  6. MIRCERA [Concomitant]
     Active Substance: PEGZEREPOETIN ALFA
     Indication: BONE MARROW FAILURE
     Dosage: ONE INJECTION EVERY 15 DAYS
     Route: 065
  7. ACYCLOVIR. [Suspect]
     Active Substance: ACYCLOVIR
     Dosage: UNK UKN, UNK
  8. FUROSEMIDE. [Concomitant]
     Active Substance: FUROSEMIDE
     Indication: DIURETIC THERAPY
     Dosage: 2 UKN, QD
     Dates: start: 2010
  9. TEGRETOL [Suspect]
     Active Substance: CARBAMAZEPINE
     Indication: EPILEPSY
     Dosage: 200 MG, UNK
     Route: 048
     Dates: start: 197006
  10. PANTOPRAZOLE [Concomitant]
     Active Substance: PANTOPRAZOLE SODIUM
     Indication: GASTRITIS
     Dosage: 1 UKN, QD
     Dates: start: 201009

REACTIONS (8)
  - Convulsion [Recovering/Resolving]
  - Toxicity to various agents [Unknown]
  - Renal impairment [Not Recovered/Not Resolved]
  - Respiratory arrest [Recovered/Resolved]
  - Renal failure [Unknown]
  - Accident [Recovered/Resolved]
  - Renal failure chronic [Not Recovered/Not Resolved]
  - Head injury [Recovered/Resolved]

NARRATIVE: CASE EVENT DATE: 1997
